FAERS Safety Report 8866198 (Version 1)
Quarter: 2012Q4

REPORT INFORMATION
  Report Type: 
  Country: US (occurrence: US)
  Receive Date: 20121025
  Receipt Date: 20121025
  Transmission Date: 20130627
  Serious: Yes (Hospitalization, Disabling)
  Sender: FDA-Public Use
  Company Number: US-ROCHE-GNE225755

PATIENT
  Age: 48 Year
  Sex: Male
  Weight: 122.83 kg

DRUGS (5)
  1. RAPTIVA [Suspect]
     Indication: PSORIASIS
     Dosage: 1 mg, 1/Week
     Route: 065
     Dates: start: 20050608
  2. RAPTIVA [Suspect]
     Indication: PUSTULAR PSORIASIS
  3. SINGULAIR [Concomitant]
     Indication: ASTHMA
     Dosage: 10 mg, UNK
     Route: 048
     Dates: start: 20050328
  4. FORADIL [Concomitant]
     Indication: ASTHMA
     Dosage: 12 ?g/hr, UNK
     Route: 048
     Dates: start: 20060306
  5. ASMANEX [Concomitant]
     Indication: ASTHMA
     Dosage: 220 ?g/hr, UNK
     Route: 049
     Dates: start: 20060506

REACTIONS (8)
  - Transient ischaemic attack [Recovered/Resolved]
  - Asthma [Unknown]
  - Pain [Unknown]
  - Skin exfoliation [Unknown]
  - Haemarthrosis [Unknown]
  - Skin exfoliation [Unknown]
  - Hepatic enzyme increased [Unknown]
  - Erythema [Unknown]
